FAERS Safety Report 8386031-8 (Version None)
Quarter: 2012Q2

REPORT INFORMATION
  Report Type: 
  Country: None (occurrence: None)
  Receive Date: 20120525
  Receipt Date: 20120521
  Transmission Date: 20120825
  Serious: No
  Sender: FDA-Public Use
  Company Number: US-PFIZER INC-2012117892

PATIENT
  Sex: Male

DRUGS (1)
  1. DIFLUCAN [Suspect]
     Indication: COCCIDIOIDOMYCOSIS
     Dosage: 800 MG, DAILY
     Dates: start: 20120101

REACTIONS (1)
  - HYPERTENSION [None]
